FAERS Safety Report 9193788 (Version 2)
Quarter: 2018Q1

REPORT INFORMATION
  Report Type: Spontaneous
  Country: US (occurrence: US)
  Receive Date: 20130327
  Receipt Date: 20180302
  Transmission Date: 20180509
  Serious: Yes (Other)
  Sender: FDA-Public Use
  Company Number: US-PFIZER INC-2013093130

PATIENT
  Age: 14 Year
  Sex: Female

DRUGS (13)
  1. ETOPOSIDE. [Concomitant]
     Active Substance: ETOPOSIDE
     Indication: SYNOVIAL SARCOMA
     Dosage: 100 MG/M2/DX5 D
  2. ETOPOSIDE. [Concomitant]
     Active Substance: ETOPOSIDE
     Dosage: 100 MG/M2, CYCLIC
  3. GEMCITABINE HYDROCHLORIDE. [Suspect]
     Active Substance: GEMCITABINE HYDROCHLORIDE
     Indication: SYNOVIAL SARCOMA
     Dosage: 900 MG/M2 ON DAYS 1 AND 8, 2 CYCLES AT 21 AND 28 DAYS
  4. THERAPEUTIC RADIOPHARMACEUTICALS [Suspect]
     Active Substance: RADIATION THERAPY
     Indication: SYNOVIAL SARCOMA
     Dosage: UNK, (350CGY IN 8 FRACTIONS)
  5. IFOSFAMIDE. [Concomitant]
     Active Substance: IFOSFAMIDE
     Indication: SYNOVIAL SARCOMA
     Dosage: 3 G/M2/DX3 D
  6. IFOSFAMIDE. [Concomitant]
     Active Substance: IFOSFAMIDE
     Dosage: UNK, CYCLIC, (3 G/M^2/D)
  7. ADRIAMYCIN [Concomitant]
     Active Substance: DOXORUBICIN HYDROCHLORIDE
     Indication: SYNOVIAL SARCOMA
     Dosage: 37.5 MG/M2/DX2 D
  8. DOCETAXEL. [Concomitant]
     Active Substance: DOCETAXEL
     Indication: SYNOVIAL SARCOMA
     Dosage: UNK, CYCLIC (2 CYCLES)
  9. THERAPEUTIC RADIOPHARMACEUTICALS [Suspect]
     Active Substance: RADIATION THERAPY
     Dosage: UNK, (20 GYIN 10 FRACTIONS)
  10. DEXAMETHASONE. [Concomitant]
     Active Substance: DEXAMETHASONE
     Indication: SYNOVIAL SARCOMA
     Dosage: 10 MG, 1X/DAY
     Route: 042
  11. IFOSFAMIDE. [Concomitant]
     Active Substance: IFOSFAMIDE
     Dosage: UNK UNK, CYCLIC, (1.8 G/M^2/D, )
  12. DOCETAXEL. [Suspect]
     Active Substance: DOCETAXEL
     Indication: SYNOVIAL SARCOMA
     Dosage: 100 MG/M2 ON DAY 8, 2 CYCLES AT 21 AND 28 DAYS
  13. IFOSFAMIDE. [Concomitant]
     Active Substance: IFOSFAMIDE
     Dosage: 1.8 G/M2/DX5 D

REACTIONS (4)
  - Recall phenomenon [Recovering/Resolving]
  - Myositis [Recovering/Resolving]
  - Compartment syndrome [Recovered/Resolved]
  - Drug administered to patient of inappropriate age [Recovered/Resolved with Sequelae]
